FAERS Safety Report 4288951-2 (Version None)
Quarter: 2004Q1

REPORT INFORMATION
  Report Type: 
  Country: None (occurrence: None)
  Receive Date: 20040206
  Receipt Date: 20040127
  Transmission Date: 20041129
  Serious: Yes (Other)
  Sender: FDA-Public Use
  Company Number: 2004196352US

PATIENT
  Age: 46 Year
  Sex: Female

DRUGS (1)
  1. DELTASONE [Suspect]
     Indication: RENAL DISORDER
     Dosage: 20 MG, QD
     Dates: start: 20040801

REACTIONS (2)
  - LEUKOCYTOSIS [None]
  - POLYCYTHAEMIA VERA [None]
